FAERS Safety Report 8520315-5 (Version None)
Quarter: 2012Q3

REPORT INFORMATION
  Report Type: 
  Country: None (occurrence: None)
  Receive Date: 20120712
  Receipt Date: 20120712
  Transmission Date: 20120928
  Serious: Yes (Other)
  Sender: FDA-Public Use
  Company Number: None

PATIENT
  Age: 54 Year
  Sex: Female

DRUGS (1)
  1. TIZANIDINE (GENERIC FOR ZANAFLEX) [Suspect]
     Indication: MUSCLE SPASTICITY
     Dosage: 2 MG 2 TAB T.I.D. PO
     Route: 048
     Dates: start: 20120401, end: 20120501

REACTIONS (2)
  - PRODUCT SUBSTITUTION ISSUE [None]
  - DRUG INEFFECTIVE [None]
